FAERS Safety Report 9869178 (Version 8)
Quarter: 2014Q2

REPORT INFORMATION
  Report Type: Report from Study
  Country: CA (occurrence: CA)
  Receive Date: 20140205
  Receipt Date: 20140612
  Transmission Date: 20141212
  Serious: Yes (Other)
  Sender: FDA-Public Use
  Company Number: CA-ROCHE-1167570

PATIENT
  Age: 63 Year
  Sex: Male
  Weight: 99.3 kg

DRUGS (16)
  1. RITUXAN [Suspect]
     Indication: RHEUMATOID ARTHRITIS
     Dosage: FREQUENCY : DAY 1, DAY 15.
     Route: 042
     Dates: start: 20110516
  2. RITUXAN [Suspect]
     Dosage: FREQUENCY : DAY 1, DAY 15.
     Route: 042
     Dates: start: 20121203
  3. RITUXAN [Suspect]
     Dosage: FREQUENCY : DAY 1, DAY 15.
     Route: 042
     Dates: start: 20130605
  4. METFORMIN [Concomitant]
  5. ALENDRONATE [Concomitant]
  6. TECTA [Concomitant]
  7. ADVAIR [Concomitant]
  8. ACETYLCYSTEINE [Concomitant]
     Indication: PRODUCTIVE COUGH
  9. GLICLAZIDE [Concomitant]
  10. BENADRYL + KAOPECTATE SOLUTION [Concomitant]
     Indication: PREMEDICATION
     Route: 048
     Dates: start: 20110516
  11. ACETAMINOPHEN [Concomitant]
     Indication: PREMEDICATION
     Route: 048
     Dates: start: 20110516
  12. SOLU-MEDROL [Concomitant]
     Indication: PREMEDICATION
     Route: 042
     Dates: start: 20110516
  13. TYLENOL [Concomitant]
     Indication: PREMEDICATION
     Route: 042
     Dates: start: 20110516
  14. DIPHENHYDRAMINE HCL [Concomitant]
     Indication: PREMEDICATION
     Route: 048
     Dates: start: 20110516
  15. METHYLPREDNISOLONE [Concomitant]
     Indication: PREMEDICATION
     Route: 042
     Dates: start: 20110516
  16. PREDNISONE [Concomitant]
     Dosage: INCREASED DOSE
     Route: 065
     Dates: start: 201312

REACTIONS (5)
  - Lung infection [Not Recovered/Not Resolved]
  - Pulmonary fibrosis [Not Recovered/Not Resolved]
  - Nasopharyngitis [Not Recovered/Not Resolved]
  - Lower respiratory tract infection [Recovered/Resolved]
  - Dyspnoea [Unknown]
